FAERS Safety Report 7582814-2 (Version None)
Quarter: 2011Q2

REPORT INFORMATION
  Report Type: 
  Country: None (occurrence: None)
  Receive Date: 20110527
  Receipt Date: 20101011
  Transmission Date: 20111010
  Serious: Yes (Other)
  Sender: FDA-Public Use
  Company Number: US201010002182

PATIENT
  Age: 60 Year
  Sex: Female

DRUGS (2)
  1. BYETTA [Suspect]
     Indication: TYPE 2 DIABETES MELLITUS
     Dosage: SUBCUTANEOUS, 5 UG, 2/D, SUBCUTANEOUS
     Route: 060
     Dates: start: 20070101, end: 20070101
  2. BYETTA [Suspect]
     Indication: TYPE 2 DIABETES MELLITUS
     Dosage: SUBCUTANEOUS, 5 UG, 2/D, SUBCUTANEOUS
     Route: 060
     Dates: start: 20100928, end: 20101009

REACTIONS (2)
  - URTICARIA [None]
  - PRURITUS [None]
